FAERS Safety Report 10147219 (Version 2)
Quarter: 2014Q2

REPORT INFORMATION
  Report Type: Report from Study
  Country: US (occurrence: US)
  Receive Date: 20140501
  Receipt Date: 20140501
  Transmission Date: 20141212
  Serious: Yes (Hospitalization)
  Sender: FDA-Public Use
  Company Number: US-CELGENEUS-163-10004-11062677

PATIENT
  Age: 68 Year
  Sex: Female
  Weight: 97.61 kg

DRUGS (5)
  1. CC-10004 [Suspect]
     Indication: PSORIASIS
     Dosage: 60 MILLIGRAM
     Route: 048
     Dates: start: 20110401, end: 20110620
  2. SYNTHROID [Concomitant]
     Indication: HYPOTHYROIDISM
     Dosage: 1.25 MILLIGRAM
     Route: 048
     Dates: start: 1989
  3. LISINOPRIL [Concomitant]
     Indication: HYPERTENSION
     Dosage: 20
     Route: 048
     Dates: start: 2010
  4. VITAMIN D [Concomitant]
     Indication: VITAMIN SUPPLEMENTATION
     Dosage: 600 MILLIGRAM
     Route: 048
     Dates: start: 2008
  5. MULTIVITAMINS [Concomitant]
     Indication: VITAMIN SUPPLEMENTATION
     Dosage: 1 TABLET
     Route: 048
     Dates: start: 2005

REACTIONS (1)
  - Transient ischaemic attack [Recovered/Resolved]
